FAERS Safety Report 8300401-5 (Version None)
Quarter: 2012Q2

REPORT INFORMATION
  Report Type: 
  Country: None (occurrence: None)
  Receive Date: 20120417
  Receipt Date: 20120409
  Transmission Date: 20120825
  Serious: Yes (Death, Hospitalization, Disabling, Other)
  Sender: FDA-Public Use
  Company Number: 2011MA003495

PATIENT
  Age: 65 Year
  Sex: Male
  Weight: 108.8633 kg

DRUGS (39)
  1. CLONAZEPAM [Concomitant]
  2. LORAZEPAM [Concomitant]
  3. TEMAZEPAM [Concomitant]
  4. METOPROLOL TARTRATE [Concomitant]
  5. PLAVIX [Concomitant]
  6. ADVAIR DISKUS 100/50 [Concomitant]
  7. ALBUTEROL [Concomitant]
  8. AMBIEN [Concomitant]
  9. FLUTICORT [Concomitant]
  10. LASIX [Concomitant]
  11. MIDODRINE HYDROCHLORIDE [Concomitant]
  12. METOCLOPRAMIDE [Suspect]
     Indication: NAUSEA
     Dosage: 10 MG
     Dates: start: 20081014, end: 20081231
  13. ALPRAZOLAM [Concomitant]
  14. HYDROCORTISONE [Concomitant]
  15. ONDANSETRON [Concomitant]
  16. POLBIC [Concomitant]
  17. VASOPRESSIN [Concomitant]
  18. CHEMOTHERAPY [Concomitant]
  19. ACTOS [Concomitant]
  20. AMILORIDE HYDROCHLORIDE [Concomitant]
  21. COGENTIN [Concomitant]
  22. FLORINEF [Concomitant]
  23. NEXIUM [Concomitant]
  24. PROMETHAZINE [Concomitant]
  25. SPIRIVA [Concomitant]
  26. ASPIRIN [Concomitant]
  27. FENTANYL-100 [Concomitant]
  28. FLUOROCORTISONE [Concomitant]
  29. KLOR-CON [Concomitant]
  30. PPI THERAPY [Concomitant]
  31. SULFAMETHOXAZOLE AND TRIMETHOPRIM [Concomitant]
  32. XANAX [Concomitant]
  33. ANTIBIOTICS [Concomitant]
  34. BENZTROPINE MESYLATE [Concomitant]
  35. LEVAQUIN [Concomitant]
  36. LEXAPRO [Concomitant]
  37. LIPITOR [Concomitant]
  38. PHOSPHASODA [Concomitant]
  39. XOPENEX [Concomitant]

REACTIONS (55)
  - DEHYDRATION [None]
  - DIZZINESS POSTURAL [None]
  - POLLAKIURIA [None]
  - TARDIVE DYSKINESIA [None]
  - DIZZINESS [None]
  - ASTHENIA [None]
  - ADENOCARCINOMA [None]
  - DYSPNOEA [None]
  - NAUSEA [None]
  - DYSTONIA [None]
  - HAEMOPTYSIS [None]
  - DYSARTHRIA [None]
  - HYPOAESTHESIA [None]
  - FATIGUE [None]
  - DEPRESSION [None]
  - EMOTIONAL DISORDER [None]
  - DIABETES INSIPIDUS [None]
  - PRESYNCOPE [None]
  - BLOOD PRESSURE INCREASED [None]
  - BACK PAIN [None]
  - CEREBROVASCULAR ACCIDENT [None]
  - WEIGHT INCREASED [None]
  - NEURITIS [None]
  - GASTROOESOPHAGEAL REFLUX DISEASE [None]
  - INJURY [None]
  - CHEST PAIN [None]
  - DYSPHONIA [None]
  - MUSCULOSKELETAL CHEST PAIN [None]
  - METASTASES TO BONE [None]
  - LUNG NEOPLASM MALIGNANT [None]
  - MALAISE [None]
  - ORTHOSTATIC HYPOTENSION [None]
  - URINARY TRACT INFECTION [None]
  - PARAESTHESIA [None]
  - ADRENAL INSUFFICIENCY [None]
  - MELAENA [None]
  - ADDISON'S DISEASE [None]
  - NODULE [None]
  - GASTRITIS [None]
  - PELVIC PAIN [None]
  - ECONOMIC PROBLEM [None]
  - BLOOD PRESSURE ORTHOSTATIC ABNORMAL [None]
  - RENAL FAILURE ACUTE [None]
  - EXTRAPYRAMIDAL DISORDER [None]
  - POLYURIA [None]
  - NEUROPATHY PERIPHERAL [None]
  - COUGH [None]
  - BARRETT'S OESOPHAGUS [None]
  - CHRONIC OBSTRUCTIVE PULMONARY DISEASE [None]
  - HYPOACUSIS [None]
  - PNEUMONIA [None]
  - DIARRHOEA [None]
  - FAMILY STRESS [None]
  - CORONARY ARTERY DISEASE [None]
  - UPPER GASTROINTESTINAL HAEMORRHAGE [None]
